FAERS Safety Report 6270957-5 (Version None)
Quarter: 2009Q3

REPORT INFORMATION
  Report Type: 
  Country: None (occurrence: None)
  Receive Date: 20090716
  Receipt Date: 20090709
  Transmission Date: 20100115
  Serious: Yes (Hospitalization, Other)
  Sender: FDA-Public Use
  Company Number: US-ELI_LILLY_AND_COMPANY-US200907001883

PATIENT
  Sex: Female

DRUGS (5)
  1. FORTEO [Suspect]
     Dates: start: 20090301, end: 20090601
  2. NORVASC [Concomitant]
  3. XANAX [Concomitant]
  4. AMBIEN [Concomitant]
  5. SOMA [Concomitant]

REACTIONS (5)
  - APHASIA [None]
  - CONTUSION [None]
  - DISORIENTATION [None]
  - DIZZINESS [None]
  - FOOT FRACTURE [None]
